FAERS Safety Report 9802596 (Version 3)
Quarter: 2014Q1

REPORT INFORMATION
  Report Type: Spontaneous
  Country: US (occurrence: US)
  Receive Date: 20140108
  Receipt Date: 20140312
  Transmission Date: 20141002
  Serious: Yes (Death, Hospitalization)
  Sender: FDA-Public Use
  Company Number: US-MERCK-1401USA001698

PATIENT
  Age: 59 Year
  Sex: Female

DRUGS (11)
  1. JANUMET [Suspect]
     Indication: DIABETES MELLITUS
     Route: 048
  2. JANUVIA [Suspect]
     Indication: DIABETES MELLITUS
  3. PROTONIX [Concomitant]
  4. PAROXETINE [Concomitant]
  5. FUROSEMIDE [Concomitant]
     Route: 048
  6. LEVOTHYROXINE SODIUM [Concomitant]
     Route: 048
  7. METOCLOPRAMIDE [Concomitant]
  8. HUMALOG [Concomitant]
  9. LANTUS [Concomitant]
  10. LEVEMIR [Concomitant]
  11. LISINOPRIL [Concomitant]
     Route: 048

REACTIONS (2)
  - Death [Fatal]
  - Pneumonia [Unknown]
